FAERS Safety Report 5392525-X (Version None)
Quarter: 2007Q3

REPORT INFORMATION
  Report Type: 
  Country: None (occurrence: None)
  Receive Date: 20070720
  Receipt Date: 20070709
  Transmission Date: 20080115
  Serious: Yes (Hospitalization, Other)
  Sender: FDA-Public Use
  Company Number: US-ELI_LILLY_AND_COMPANY-US200707001994

PATIENT
  Age: 50 Year
  Sex: Female
  Weight: 137 kg

DRUGS (8)
  1. CYMBALTA [Suspect]
     Indication: DIABETIC NEUROPATHY
     Dosage: UNK MG, UNK
  2. CYMBALTA [Suspect]
     Dosage: 120 MG, 2/D
  3. LANTUS [Concomitant]
  4. PROTONIX [Concomitant]
  5. NORVASC [Concomitant]
  6. LISINOPRIL [Concomitant]
  7. ATIVAN [Concomitant]
  8. MORPHINE [Concomitant]
     Indication: PAIN
     Route: 048

REACTIONS (2)
  - GASTROENTERITIS [None]
  - SEPSIS [None]
